FAERS Safety Report 8400529-5 (Version None)
Quarter: 2012Q2

REPORT INFORMATION
  Report Type: 
  Country: None (occurrence: None)
  Receive Date: 20120531
  Receipt Date: 20120523
  Transmission Date: 20120825
  Serious: Yes (Other)
  Sender: FDA-Public Use
  Company Number: AU-ALLERGAN-1114520US

PATIENT
  Sex: Male

DRUGS (2)
  1. LUMIGAN [Suspect]
     Indication: GLAUCOMA
     Dosage: 1 GTT, QD
     Route: 047
     Dates: start: 20090101
  2. AVAPRO [Concomitant]
     Indication: HYPERTENSION
     Dosage: 1 GTT, QD
     Route: 047

REACTIONS (1)
  - CYSTOID MACULAR OEDEMA [None]
